FAERS Safety Report 8338015-3 (Version None)
Quarter: 2012Q2

REPORT INFORMATION
  Report Type: 
  Country: None (occurrence: None)
  Receive Date: 20120504
  Receipt Date: 20120427
  Transmission Date: 20120825
  Serious: Yes (Hospitalization, Other)
  Sender: FDA-Public Use
  Company Number: DE-ABBOTT-12P-062-0902756-00

PATIENT
  Sex: Male
  Weight: 88 kg

DRUGS (7)
  1. METHOTREXATE [Concomitant]
     Indication: PRODUCT USED FOR UNKNOWN INDICATION
     Route: 058
     Dates: start: 20110701
  2. METHOTREXATE [Concomitant]
     Route: 030
  3. GASTRIC PROTECTION [Concomitant]
     Indication: GASTRIC DISORDER
  4. TILIDIN [Concomitant]
     Indication: PRODUCT USED FOR UNKNOWN INDICATION
     Dates: end: 20120126
  5. GASTRIC PROTECTION [Concomitant]
     Indication: PROPHYLAXIS
  6. IBUPROFEN [Concomitant]
     Indication: PRODUCT USED FOR UNKNOWN INDICATION
     Dates: end: 20120126
  7. HUMIRA [Suspect]
     Indication: PSORIATIC ARTHROPATHY
     Route: 058
     Dates: start: 20110831, end: 20120126

REACTIONS (12)
  - VASCULITIS [None]
  - NAIL BED BLEEDING [None]
  - SJOGREN'S SYNDROME [None]
  - GENERAL PHYSICAL HEALTH DETERIORATION [None]
  - CYANOSIS [None]
  - CHEST PAIN [None]
  - ONYCHOLYSIS [None]
  - HYPERCHOLESTEROLAEMIA [None]
  - ARTHRALGIA [None]
  - NAIL DISORDER [None]
  - BORRELIA INFECTION [None]
  - LENTIGO [None]
